FAERS Safety Report 9087638 (Version 1)
Quarter: 2013Q1

REPORT INFORMATION
  Report Type: Report from Study
  Country: US (occurrence: US)
  Receive Date: 20130201
  Receipt Date: 20130201
  Transmission Date: 20140127
  Serious: No
  Sender: FDA-Public Use
  Company Number: US-ABBOTT-12P-163-1025115-00

PATIENT
  Age: 35 Year
  Sex: Female
  Weight: 72.64 kg

DRUGS (8)
  1. HUMIRA [Suspect]
     Indication: SYSTEMIC LUPUS ERYTHEMATOSUS
     Route: 058
     Dates: start: 20121211
  2. HUMIRA [Suspect]
     Indication: FIBROMYALGIA
  3. PREDNISONE [Concomitant]
     Indication: SYSTEMIC LUPUS ERYTHEMATOSUS
  4. FOLIC ACID [Concomitant]
     Indication: ILL-DEFINED DISORDER
  5. IRON [Concomitant]
     Indication: ILL-DEFINED DISORDER
  6. METHOTREXATE [Concomitant]
     Indication: SYSTEMIC LUPUS ERYTHEMATOSUS
  7. ADAPEX [Concomitant]
     Indication: WEIGHT DECREASED
  8. TYLENOL [Concomitant]
     Indication: FIBROMYALGIA

REACTIONS (2)
  - Off label use [Not Recovered/Not Resolved]
  - Headache [Unknown]
